FAERS Safety Report 7671335-4 (Version None)
Quarter: 2011Q3

REPORT INFORMATION
  Report Type: 
  Country: None (occurrence: None)
  Receive Date: 20110804
  Receipt Date: 20110720
  Transmission Date: 20111222
  Serious: Yes (Life-Threatening, Other)
  Sender: FDA-Public Use
  Company Number: 2011MA009195

PATIENT
  Sex: Female

DRUGS (2)
  1. ALPRAZOLAM [Suspect]
     Indication: OVERDOSE
  2. OXYMORPHONE [Suspect]
     Indication: OVERDOSE

REACTIONS (8)
  - DYSPNOEA [None]
  - TOXICOLOGIC TEST ABNORMAL [None]
  - WAXY FLEXIBILITY [None]
  - LOSS OF CONSCIOUSNESS [None]
  - INCORRECT ROUTE OF DRUG ADMINISTRATION [None]
  - MULTIPLE DRUG OVERDOSE [None]
  - DRUG ABUSE [None]
  - CYANOSIS [None]
